FAERS Safety Report 20443947 (Version 1)
Quarter: 2022Q1

REPORT INFORMATION
  Report Type: Report from Study
  Country: DE (occurrence: DE)
  Receive Date: 20220208
  Receipt Date: 20220208
  Transmission Date: 20220423
  Serious: Yes (Other)
  Sender: FDA-Public Use
  Company Number: DE-TAKEDA-2022TUS008233

PATIENT
  Age: 35 Year
  Sex: Male
  Weight: 84 kg

DRUGS (9)
  1. ADVATE [Suspect]
     Active Substance: ANTIHEMOPHILIC FACTOR, HUMAN RECOMBINANT
     Indication: Factor VIII deficiency
     Dosage: 2500 INTERNATIONAL UNIT
     Route: 065
     Dates: end: 20210703
  2. ADVATE [Suspect]
     Active Substance: ANTIHEMOPHILIC FACTOR, HUMAN RECOMBINANT
     Indication: Factor VIII deficiency
     Dosage: 2500 INTERNATIONAL UNIT
     Route: 065
     Dates: end: 20210703
  3. ADVATE [Suspect]
     Active Substance: ANTIHEMOPHILIC FACTOR, HUMAN RECOMBINANT
     Indication: Factor VIII deficiency
     Dosage: 2500 INTERNATIONAL UNIT
     Route: 065
     Dates: end: 20210703
  4. ADVATE [Suspect]
     Active Substance: ANTIHEMOPHILIC FACTOR, HUMAN RECOMBINANT
     Indication: Prophylaxis
     Dosage: 2500 INTERNATIONAL UNIT
     Route: 065
     Dates: end: 20210703
  5. ADVATE [Suspect]
     Active Substance: ANTIHEMOPHILIC FACTOR, HUMAN RECOMBINANT
     Indication: Prophylaxis
     Dosage: 2500 INTERNATIONAL UNIT
     Route: 065
     Dates: end: 20210703
  6. ADVATE [Suspect]
     Active Substance: ANTIHEMOPHILIC FACTOR, HUMAN RECOMBINANT
     Indication: Prophylaxis
     Dosage: 2500 INTERNATIONAL UNIT
     Route: 065
     Dates: end: 20210703
  7. AMOXICILLIN [Concomitant]
     Active Substance: AMOXICILLIN
     Indication: Otitis media
     Dosage: UNK
     Route: 048
     Dates: start: 20170206, end: 20170220
  8. Antibiose [Concomitant]
     Indication: Folliculitis
     Dosage: UNK
     Route: 048
  9. BANDAGE [Concomitant]
     Active Substance: BENZALKONIUM CHLORIDE
     Indication: Hyporeflexia
     Dosage: UNK
     Route: 061
     Dates: start: 20201013

REACTIONS (1)
  - Haemorrhage [Recovered/Resolved]

NARRATIVE: CASE EVENT DATE: 20210802
